FAERS Safety Report 4655467-0 (Version None)
Quarter: 2005Q2

REPORT INFORMATION
  Report Type: 
  Country: None (occurrence: None)
  Receive Date: 20050505
  Receipt Date: 20050412
  Transmission Date: 20051028
  Serious: Yes (Hospitalization)
  Sender: FDA-Public Use
  Company Number: 2005BI007571

PATIENT
  Age: 52 Year
  Sex: Male
  Weight: 79.3795 kg

DRUGS (4)
  1. AVONEX [Suspect]
     Indication: MULTIPLE SCLEROSIS
     Dosage: 30 UG; QW; IM
     Route: 030
     Dates: start: 20040929
  2. RANITIDINE [Concomitant]
  3. ATENOLOL [Concomitant]
  4. PAXIL [Concomitant]

REACTIONS (8)
  - ABDOMINAL DISCOMFORT [None]
  - CONSTIPATION [None]
  - COORDINATION ABNORMAL [None]
  - FULL BLOOD COUNT DECREASED [None]
  - GASTROINTESTINAL HAEMORRHAGE [None]
  - HYPOAESTHESIA [None]
  - INTESTINAL POLYP [None]
  - NAUSEA [None]
